FAERS Safety Report 14589918 (Version 9)
Quarter: 2023Q2

REPORT INFORMATION
  Report Type: Spontaneous
  Country: JP (occurrence: JP)
  Receive Date: 20180302
  Receipt Date: 20230615
  Transmission Date: 20230721
  Serious: Yes (Death, Hospitalization, Other)
  Sender: FDA-Public Use
  Company Number: JP-BRISTOL-MYERS SQUIBB COMPANY-BMS-2018-018891

PATIENT
  Age: 73 Year
  Sex: Male
  Weight: 36 kg

DRUGS (2)
  1. OPDIVO [Suspect]
     Active Substance: NIVOLUMAB
     Indication: Gastric cancer
     Dosage: 170 MG, QD
     Route: 041
     Dates: start: 20180210, end: 20180210
  2. NEXIUM [Concomitant]
     Active Substance: ESOMEPRAZOLE MAGNESIUM
     Indication: Product used for unknown indication
     Dosage: 20 MG, UNK
     Route: 048
     Dates: start: 20171110, end: 20180219

REACTIONS (3)
  - Upper gastrointestinal haemorrhage [Fatal]
  - Immune thrombocytopenia [Fatal]
  - Shock haemorrhagic [Fatal]

NARRATIVE: CASE EVENT DATE: 20180219
